FAERS Safety Report 4370872-8 (Version None)
Quarter: 2004Q2

REPORT INFORMATION
  Report Type: 
  Country: None (occurrence: None)
  Receive Date: 20040601
  Receipt Date: 20040518
  Transmission Date: 20050107
  Serious: Yes (Life-Threatening)
  Sender: FDA-Public Use
  Company Number: JP-SHR-04-024712

PATIENT
  Age: 63 Year
  Sex: Female
  Weight: 54 kg

DRUGS (6)
  1. FLUDARA [Suspect]
     Indication: NON-HODGKIN'S LYMPHOMA
     Dosage: 40 MG, 1X/DAY:(R-FND THERAPY), INTRAVENOUS; SEE IMAGE
     Route: 042
     Dates: start: 20030516, end: 20030518
  2. FLUDARA [Suspect]
     Indication: NON-HODGKIN'S LYMPHOMA
     Dosage: 40 MG, 1X/DAY:(R-FND THERAPY), INTRAVENOUS; SEE IMAGE
     Route: 042
     Dates: start: 20030620, end: 20030622
  3. FLUDARA [Suspect]
     Indication: NON-HODGKIN'S LYMPHOMA
     Dosage: 40 MG, 1X/DAY:(R-FND THERAPY), INTRAVENOUS; SEE IMAGE
     Route: 042
     Dates: start: 20040325, end: 20040327
  4. RITUXAN [Concomitant]
  5. NOVANTRON (MITOXANTRONE HYDROCHLORIDE MITOXANTRONE) [Concomitant]
  6. DECADRON [Concomitant]

REACTIONS (5)
  - DISEASE RECURRENCE [None]
  - METASTASES TO BONE [None]
  - MONOCYTE MORPHOLOGY ABNORMAL [None]
  - MYELODYSPLASTIC SYNDROME [None]
  - NON-HODGKIN'S LYMPHOMA [None]
